FAERS Safety Report 6225098-X (Version None)
Quarter: 2009Q2

REPORT INFORMATION
  Report Type: 
  Country: None (occurrence: None)
  Receive Date: 20090612
  Receipt Date: 20090423
  Transmission Date: 20091009
  Serious: No
  Sender: FDA-Public Use
  Company Number: US-ABBOTT-09P-163-0567088-00

PATIENT
  Sex: Female
  Weight: 88.53 kg

DRUGS (2)
  1. HUMIRA [Suspect]
     Indication: ANKYLOSING SPONDYLITIS
     Route: 058
     Dates: start: 20060301
  2. HUMIRA [Suspect]
     Route: 058
     Dates: start: 20090201

REACTIONS (4)
  - ACNE [None]
  - DRUG INEFFECTIVE [None]
  - LOCALISED INFECTION [None]
  - SKIN LACERATION [None]
